FAERS Safety Report 10699751 (Version 1)
Quarter: 2015Q1

REPORT INFORMATION
  Report Type: Spontaneous
  Country: US (occurrence: None)
  Receive Date: 20150108
  Receipt Date: 20150108
  Transmission Date: 20150721
  Serious: Yes (Death)
  Sender: FDA-Public Use
  Company Number: None

PATIENT
  Age: 1 Year
  Sex: Female
  Weight: 9.5 kg

DRUGS (2)
  1. MELPHALAN [Suspect]
     Active Substance: MELPHALAN
     Dates: end: 20141014
  2. BUSULFAN [Suspect]
     Active Substance: BUSULFAN
     Dates: end: 20141012

REACTIONS (6)
  - Bacterial test positive [None]
  - Haematochezia [None]
  - Blood culture positive [None]
  - Gastroenteritis radiation [None]
  - Metastases to central nervous system [None]
  - Metastatic neoplasm [None]

NARRATIVE: CASE EVENT DATE: 20141229
